FAERS Safety Report 15320852 (Version 1)
Quarter: 2018Q3

REPORT INFORMATION
  Report Type: Spontaneous
  Country: US (occurrence: US)
  Receive Date: 20180821
  Receipt Date: 20180821
  Transmission Date: 20181010
  Serious: No
  Sender: FDA-Public Use
  Company Number: None

PATIENT
  Age: 78 Year
  Sex: Female
  Weight: 66.68 kg

DRUGS (8)
  1. LOSARTAN. [Concomitant]
     Active Substance: LOSARTAN
  2. DULOXETINE. [Concomitant]
     Active Substance: DULOXETINE
  3. DILTIAZEM. [Concomitant]
     Active Substance: DILTIAZEM
  4. BABY ASPIRIN [Concomitant]
     Active Substance: ASPIRIN
  5. VALSARTAN. [Suspect]
     Active Substance: VALSARTAN
     Indication: HYPERTENSION
     Dosage: ?          QUANTITY:1 DF DOSAGE FORM;?
     Route: 048
     Dates: start: 20161209, end: 20180805
  6. BONE DENSITY FORMULA (CALCIUM, MAGNESIUM, VITAMIN C, VITAMIN D, BORON) [Concomitant]
  7. BIOTIN [Concomitant]
     Active Substance: BIOTIN
  8. KRILL OIL [Concomitant]
     Active Substance: DIETARY SUPPLEMENT

REACTIONS (2)
  - Cough [None]
  - Hepatic cancer [None]
